FAERS Safety Report 5634914-1 (Version None)
Quarter: 2008Q1

REPORT INFORMATION
  Report Type: 
  Country: None (occurrence: None)
  Receive Date: 20080222
  Receipt Date: 20071217
  Transmission Date: 20080703
  Serious: Yes (Hospitalization, Other)
  Sender: FDA-Public Use
  Company Number: TR-ELI_LILLY_AND_COMPANY-TR200801006482

PATIENT
  Sex: Male
  Weight: 60 kg

DRUGS (3)
  1. HUMULIN 70/30 [Suspect]
     Dosage: 22 U, 2/D
     Route: 058
     Dates: start: 20050101
  2. HUMULIN R [Suspect]
     Dosage: 22 UNITS/NOON
     Route: 058
     Dates: start: 20060101
  3. IMURAN [Concomitant]
     Indication: MULTIPLE SCLEROSIS
     Dosage: 50 MG, 2/D
     Dates: start: 20060101

REACTIONS (2)
  - MULTIPLE SCLEROSIS [None]
  - WEIGHT INCREASED [None]
